FAERS Safety Report 8597745-9 (Version None)
Quarter: 2012Q3

REPORT INFORMATION
  Report Type: 
  Country: None (occurrence: None)
  Receive Date: 20120816
  Receipt Date: 20120810
  Transmission Date: 20120928
  Serious: Yes (Hospitalization, Other)
  Sender: FDA-Public Use
  Company Number: PHEH2012US011897

PATIENT
  Sex: Female

DRUGS (1)
  1. SANDOSTATIN LAR [Suspect]
     Indication: PANCREATITIS CHRONIC
     Dosage: 20 MG, UNK
     Route: 030

REACTIONS (5)
  - CONDITION AGGRAVATED [None]
  - ASTHENIA [None]
  - PANCREATITIS CHRONIC [None]
  - VOMITING [None]
  - CONFUSIONAL STATE [None]
